FAERS Safety Report 9329017 (Version 1)
Quarter: 2013Q2

REPORT INFORMATION
  Report Type: Spontaneous
  Country: US (occurrence: US)
  Receive Date: 20130604
  Receipt Date: 20130604
  Transmission Date: 20140414
  Serious: No
  Sender: FDA-Public Use
  Company Number: US-SANOFI-AVENTIS-2013SA040815

PATIENT
  Sex: 0

DRUGS (2)
  1. LANTUS [Suspect]
  2. LEVEMIR [Concomitant]

REACTIONS (3)
  - Headache [Unknown]
  - Eye pain [Unknown]
  - Injection site pain [Unknown]
